FAERS Safety Report 6310220-7 (Version None)
Quarter: 2009Q3

REPORT INFORMATION
  Report Type: 
  Country: None (occurrence: None)
  Receive Date: 20090814
  Receipt Date: 20090804
  Transmission Date: 20100115
  Serious: Yes (Hospitalization, Other)
  Sender: FDA-Public Use
  Company Number: US-ABBOTT-09P-163-0589189-00

PATIENT
  Sex: Female
  Weight: 72.64 kg

DRUGS (2)
  1. HUMIRA [Suspect]
     Indication: CROHN'S DISEASE
     Dates: start: 20080501, end: 20090601
  2. MERCAPTOPURINE [Concomitant]
     Indication: ABSCESS
     Dates: start: 20090601

REACTIONS (5)
  - ABSCESS [None]
  - BLOOD POTASSIUM DECREASED [None]
  - CROHN'S DISEASE [None]
  - FISTULA [None]
  - SMALL INTESTINAL OBSTRUCTION [None]
